FAERS Safety Report 5059721-2 (Version None)
Quarter: 2006Q3

REPORT INFORMATION
  Report Type: 
  Country: None (occurrence: None)
  Receive Date: 20060718
  Receipt Date: 20060711
  Transmission Date: 20061208
  Serious: Yes (Hospitalization)
  Sender: FDA-Public Use
  Company Number: 200610879BYL

PATIENT
  Age: 19 Year
  Sex: Female
  Weight: 45 kg

DRUGS (6)
  1. AVELOX [Suspect]
     Indication: BRONCHITIS ACUTE
     Dosage: 400 MG, QD, ORAL
     Route: 048
     Dates: start: 20060621, end: 20060624
  2. PL GRANULE [Suspect]
     Indication: BRONCHITIS ACUTE
     Dosage: 1 G, TID, ORAL
     Route: 048
     Dates: start: 20060619, end: 20060624
  3. DEXTROMETHORPHAN HYDROBROMIDE [Suspect]
     Indication: BRONCHITIS ACUTE
     Dosage: 30 MG, BID, ORAL
     Route: 048
     Dates: start: 20060619, end: 20060624
  4. KLARICID [Concomitant]
  5. MUCOSAL [Concomitant]
  6. HOKUNALIN [Concomitant]

REACTIONS (3)
  - EOSINOPHILIC PNEUMONIA [None]
  - PNEUMONIA MYCOPLASMAL [None]
  - PULMONARY OEDEMA [None]
